FAERS Safety Report 9002073 (Version 6)
Quarter: 2013Q1

REPORT INFORMATION
  Report Type: Spontaneous
  Country: DK (occurrence: DK)
  Receive Date: 20130107
  Receipt Date: 20130325
  Transmission Date: 20140127
  Serious: Yes (Other)
  Sender: FDA-Public Use
  Company Number: DK-AMGEN-DNKSP2012081465

PATIENT
  Age: 71 Year
  Sex: Female
  Weight: 70 kg

DRUGS (3)
  1. PROLIA [Suspect]
     Indication: OSTEOPOROSIS
     Dosage: 60 MG/ML, Q6MO
     Route: 058
     Dates: start: 20111219, end: 20120621
  2. SELOZOK [Concomitant]
     Indication: HYPERTENSION
     Dosage: 50 MG, QID
     Route: 048
     Dates: start: 2002
  3. VITAMINS                           /00067501/ [Concomitant]

REACTIONS (21)
  - Incontinence [Recovering/Resolving]
  - Paralysis [Recovering/Resolving]
  - Dizziness [Recovered/Resolved]
  - Heart rate increased [Recovering/Resolving]
  - Joint stiffness [Recovering/Resolving]
  - Hypoaesthesia [Recovering/Resolving]
  - Paraesthesia [Recovered/Resolved]
  - Burning sensation [Recovering/Resolving]
  - Palpitations [Recovered/Resolved]
  - Hypersomnia [Recovering/Resolving]
  - Ear disorder [Unknown]
  - Balance disorder [Unknown]
  - Myalgia [Recovering/Resolving]
  - Arthralgia [Recovered/Resolved]
  - Sciatica [Recovering/Resolving]
  - Dysuria [Unknown]
  - Musculoskeletal pain [Unknown]
  - Bone pain [Unknown]
  - Pollakiuria [Recovered/Resolved]
  - Sensory disturbance [Recovered/Resolved]
  - Pain in extremity [Recovered/Resolved]
